FAERS Safety Report 8269378-5 (Version None)
Quarter: 2012Q2

REPORT INFORMATION
  Report Type: 
  Country: None (occurrence: None)
  Receive Date: 20120409
  Receipt Date: 20120327
  Transmission Date: 20120825
  Serious: Yes (Hospitalization)
  Sender: FDA-Public Use
  Company Number: US-ROCHE-1053306

PATIENT
  Sex: Male

DRUGS (6)
  1. PREDNISOLONE [Concomitant]
  2. OMALIZUMAB [Suspect]
     Indication: ASTHMA
     Route: 030
     Dates: start: 20120221
  3. IPRATROPIUM BROMIDE [Concomitant]
  4. ADVAIR DISKUS 100/50 [Concomitant]
  5. ALBUTEROL [Concomitant]
  6. QVAR 40 [Concomitant]

REACTIONS (2)
  - INTESTINAL OBSTRUCTION [None]
  - HIATUS HERNIA [None]
